FAERS Safety Report 8183339-6 (Version None)
Quarter: 2012Q1

REPORT INFORMATION
  Report Type: 
  Country: None (occurrence: None)
  Receive Date: 20120305
  Receipt Date: 20120223
  Transmission Date: 20120608
  Serious: Yes (Life-Threatening, Hospitalization)
  Sender: FDA-Public Use
  Company Number: ES-SANOFI-AVENTIS-2012SA012314

PATIENT
  Age: 73 Year
  Sex: Female

DRUGS (6)
  1. SINTROM [Concomitant]
     Indication: ATRIAL FIBRILLATION
     Route: 048
     Dates: end: 20090804
  2. FUROSEMIDE [Suspect]
     Indication: CARDIAC FAILURE
     Route: 048
     Dates: start: 20090625, end: 20090804
  3. DIOVAN [Concomitant]
     Indication: CARDIAC FAILURE
     Route: 048
     Dates: start: 20090301, end: 20090723
  4. ALDACTONE [Concomitant]
     Indication: CARDIAC FAILURE
     Route: 048
     Dates: end: 20090723
  5. FUROSEMIDE [Interacting]
     Route: 048
     Dates: end: 20090624
  6. DIGOXIN [Interacting]
     Indication: ATRIAL FIBRILLATION
     Route: 048
     Dates: end: 20090804

REACTIONS (1)
  - TOXICITY TO VARIOUS AGENTS [None]
